FAERS Safety Report 9107251 (Version 1)
Quarter: 2013Q1

REPORT INFORMATION
  Report Type: Report from Study
  Country: DE (occurrence: DE)
  Receive Date: 20130221
  Receipt Date: 20130221
  Transmission Date: 20140127
  Serious: Yes (Hospitalization)
  Sender: FDA-Public Use
  Company Number: DE-BRISTOL-MYERS SQUIBB COMPANY-16058745

PATIENT
  Age: 68 Year
  Sex: Male

DRUGS (2)
  1. IPILIMUMAB [Suspect]
     Indication: PROSTATE CANCER
     Dosage: TOTAL DOSE 840 MG
     Route: 042
     Dates: start: 20110405
  2. ASTONIN-H [Concomitant]
     Dates: start: 20110608

REACTIONS (1)
  - Hyponatraemia [Recovered/Resolved with Sequelae]
